FAERS Safety Report 4730519-5 (Version None)
Quarter: 2005Q3

REPORT INFORMATION
  Report Type: 
  Country: None (occurrence: None)
  Receive Date: 20050725
  Receipt Date: 20050218
  Transmission Date: 20060218
  Serious: No
  Sender: FDA-Public Use
  Company Number: USA050291279

PATIENT
  Age: 11 Year
  Sex: Male
  Weight: 31 kg

DRUGS (1)
  1. STRATTERA [Suspect]
     Indication: ATTENTION DEFICIT/HYPERACTIVITY DISORDER
     Dosage: 60 MG/1 DAY

REACTIONS (6)
  - AGGRESSION [None]
  - DEPRESSED MOOD [None]
  - DRUG INEFFECTIVE [None]
  - DYSPHONIA [None]
  - PRESCRIBED OVERDOSE [None]
  - RESTLESSNESS [None]
